FAERS Safety Report 20561410 (Version 1)
Quarter: 2022Q1

REPORT INFORMATION
  Report Type: Report from Study
  Country: BR (occurrence: BR)
  Receive Date: 20220307
  Receipt Date: 20220307
  Transmission Date: 20220423
  Serious: Yes (Death, Other)
  Sender: FDA-Public Use
  Company Number: BR-NOVARTISPH-NVSC2020BR318689

PATIENT
  Age: 86 Year
  Sex: Male

DRUGS (1)
  1. EXELON [Suspect]
     Active Substance: RIVASTIGMINE TARTRATE
     Indication: Product used for unknown indication
     Dosage: 1 DF, QD, 1.5
     Route: 065

REACTIONS (3)
  - Cardiac failure [Fatal]
  - Parkinson^s disease [Unknown]
  - Memory impairment [Unknown]

NARRATIVE: CASE EVENT DATE: 20200322
